FAERS Safety Report 5339494-6 (Version None)
Quarter: 2007Q2

REPORT INFORMATION
  Report Type: 
  Country: None (occurrence: None)
  Receive Date: 20070525
  Receipt Date: 20070427
  Transmission Date: 20071010
  Serious: Yes (Other)
  Sender: FDA-Public Use
  Company Number: 100#08#2007-01522

PATIENT
  Age: 66 Year
  Sex: Male

DRUGS (3)
  1. CISPLATIN [Suspect]
     Indication: PLEURAL MESOTHELIOMA
     Dosage: INTRAVENOUS 7 COURSES
     Route: 042
  2. CARBOPLATIN [Suspect]
     Indication: DRUG USE FOR UNKNOWN INDICATION
  3. PEMETREXED (PEMETREXED)(PEMETREXED) [Concomitant]

REACTIONS (2)
  - ABDOMINAL PAIN [None]
  - ANAPHYLACTIC REACTION [None]
